FAERS Safety Report 15255541 (Version 1)
Quarter: 2018Q3

REPORT INFORMATION
  Report Type: Spontaneous
  Country: US (occurrence: US)
  Receive Date: 20180808
  Receipt Date: 20180808
  Transmission Date: 20181010
  Serious: No
  Sender: FDA-Public Use
  Company Number: US-PFIZER INC-2018311032

PATIENT
  Age: 43 Year
  Sex: Male
  Weight: 38.95 kg

DRUGS (6)
  1. VALACICLOVIR [Concomitant]
     Active Substance: VALACYCLOVIR HYDROCHLORIDE
     Indication: ANTIBIOTIC PROPHYLAXIS
     Dosage: 500 MG, DAILY
     Route: 048
  2. VANCOMYCIN [Concomitant]
     Active Substance: VANCOMYCIN
     Dosage: 1750 MG, 2X/DAY (EVERY 12 HOURS)
     Route: 042
  3. CLINDAMYCIN PHOSPHATE. [Suspect]
     Active Substance: CLINDAMYCIN PHOSPHATE
     Indication: CELLULITIS
     Dosage: 600 MG, 3X/DAY (EVERY 8 HOURS)
     Route: 042
     Dates: end: 20180725
  4. NIPENT [Suspect]
     Active Substance: PENTOSTATIN
     Indication: HAIRY CELL LEUKAEMIA
     Dosage: UNK (4MG PER METERED SQUARED IV ON DAY ONE, DAY EIGHT, AND DAY FIFTEEN)
     Route: 042
     Dates: start: 20180726
  5. MEROPENEM. [Concomitant]
     Active Substance: MEROPENEM
     Indication: CELLULITIS
     Dosage: 1 G, 3X/DAY (EVERY 8 HOURS)
     Route: 042
  6. ANCEF [Concomitant]
     Active Substance: CEFAZOLIN SODIUM
     Dosage: 2 G, 3X/DAY (EVERY 8 HOURS)
     Route: 042

REACTIONS (1)
  - Rash [Not Recovered/Not Resolved]
